FAERS Safety Report 5712747-5 (Version None)
Quarter: 2008Q2

REPORT INFORMATION
  Report Type: 
  Country: None (occurrence: None)
  Receive Date: 20080422
  Receipt Date: 20080417
  Transmission Date: 20081010
  Serious: Yes (Life-Threatening, Hospitalization)
  Sender: FDA-Public Use
  Company Number: GB-JNJFOC-20080403870

PATIENT
  Age: 4 Year

DRUGS (1)
  1. FENTANYL CITRATE [Suspect]
     Indication: ACCIDENTAL EXPOSURE
     Route: 062

REACTIONS (2)
  - ACCIDENTAL EXPOSURE [None]
  - THERAPEUTIC AGENT TOXICITY [None]
